FAERS Safety Report 11615194 (Version 3)
Quarter: 2016Q1

REPORT INFORMATION
  Report Type: Spontaneous
  Country: US (occurrence: US)
  Receive Date: 20151009
  Receipt Date: 20160217
  Transmission Date: 20160525
  Serious: No
  Sender: FDA-Public Use
  Company Number: US-PFIZER INC-2015332038

PATIENT
  Age: 81 Year
  Sex: Female
  Weight: 79 kg

DRUGS (2)
  1. XELJANZ [Suspect]
     Active Substance: TOFACITINIB CITRATE
     Indication: ARTHRITIS
     Dosage: 5 MG, 2X/DAY
     Dates: start: 201509
  2. XELJANZ [Suspect]
     Active Substance: TOFACITINIB CITRATE
     Indication: RHEUMATOID ARTHRITIS

REACTIONS (4)
  - Diarrhoea [Unknown]
  - Disease recurrence [Recovering/Resolving]
  - Urinary tract infection [Recovering/Resolving]
  - Faeces discoloured [Unknown]

NARRATIVE: CASE EVENT DATE: 20150928
